FAERS Safety Report 7603135-5 (Version None)
Quarter: 2011Q3

REPORT INFORMATION
  Report Type: 
  Country: None (occurrence: None)
  Receive Date: 20110711
  Receipt Date: 20110711
  Transmission Date: 20111222
  Serious: No
  Sender: FDA-Public Use
  Company Number: None

PATIENT
  Age: 65 Year
  Sex: Female
  Weight: 72.5755 kg

DRUGS (1)
  1. SIMVASTATIN [Suspect]
     Indication: BLOOD CHOLESTEROL INCREASED
     Dates: start: 20091108, end: 20100620

REACTIONS (5)
  - CONSTIPATION [None]
  - GAIT DISTURBANCE [None]
  - LACRIMATION INCREASED [None]
  - INTESTINAL ISCHAEMIA [None]
  - MUSCULAR WEAKNESS [None]
